FAERS Safety Report 14359414 (Version 1)
Quarter: 2018Q1

REPORT INFORMATION
  Report Type: Spontaneous
  Country: US (occurrence: US)
  Receive Date: 20180105
  Receipt Date: 20180105
  Transmission Date: 20180509
  Serious: No
  Sender: FDA-Public Use
  Company Number: US-SA-2017SA199068

PATIENT
  Age: 37 Year
  Sex: Male

DRUGS (1)
  1. ZANTAC [Suspect]
     Active Substance: RANITIDINE HYDROCHLORIDE
     Indication: GASTROOESOPHAGEAL REFLUX DISEASE
     Dosage: DOSE: 150 (UNIT UNSPECIFIED), FREQUENCY: TWICE AM/PM, DAILY DOSE: 300 (UNIT UNSPECIFIED)
     Route: 048

REACTIONS (1)
  - Genotype drug resistance test positive [Unknown]
